FAERS Safety Report 8380147-8 (Version None)
Quarter: 2012Q2

REPORT INFORMATION
  Report Type: 
  Country: None (occurrence: None)
  Receive Date: 20120523
  Receipt Date: 20120514
  Transmission Date: 20120825
  Serious: Yes (Life-Threatening)
  Sender: FDA-Public Use
  Company Number: FR-PURDUE-GBR-2012-0010471

PATIENT
  Sex: Male

DRUGS (2)
  1. ACETAMINOPHEN AND TRAMADOL HCL [Suspect]
     Indication: INTENTIONAL SELF-INJURY
     Dosage: 8 DF, SINGLE
     Route: 048
     Dates: start: 20120401, end: 20120401
  2. OXYCONTIN [Suspect]
     Indication: INTENTIONAL SELF-INJURY
     Dosage: 8 DF, SINGLE
     Route: 048
     Dates: start: 20120401, end: 20120401

REACTIONS (9)
  - RHABDOMYOLYSIS [None]
  - HYPOXIC-ISCHAEMIC ENCEPHALOPATHY [None]
  - RENAL FAILURE ACUTE [None]
  - HYPERGLYCAEMIA [None]
  - COMA [None]
  - SUICIDE ATTEMPT [None]
  - MIOSIS [None]
  - RESPIRATORY ACIDOSIS [None]
  - LIVER INJURY [None]
